FAERS Safety Report 18643947 (Version 1)
Quarter: 2020Q4

REPORT INFORMATION
  Report Type: Spontaneous
  Country: US (occurrence: US)
  Receive Date: 20201221
  Receipt Date: 20201221
  Transmission Date: 20210114
  Serious: Yes (Death, Life-Threatening, Other)
  Sender: FDA-Public Use
  Company Number: US-AMGEN-USASP2020204631

PATIENT

DRUGS (5)
  1. CLADRIBINE. [Concomitant]
     Active Substance: CLADRIBINE
     Dosage: UNK
  2. MITOXANTRONE [Concomitant]
     Active Substance: MITOXANTRONE HYDROCHLORIDE
     Dosage: UNK
  3. FLUDARABINE [Concomitant]
     Active Substance: FLUDARABINE PHOSPHATE
     Dosage: UNK
  4. CYTARABINE. [Concomitant]
     Active Substance: CYTARABINE
     Dosage: UNK
  5. FILGRASTIM [Suspect]
     Active Substance: FILGRASTIM
     Indication: PROPHYLAXIS
     Dosage: UNK
     Route: 065

REACTIONS (26)
  - Transplantation complication [Fatal]
  - Aplasia [Fatal]
  - Adenovirus infection [Fatal]
  - Pyrexia [Unknown]
  - Disease progression [Fatal]
  - Leukaemia recurrent [Fatal]
  - Pulmonary veno-occlusive disease [Fatal]
  - Gastrointestinal fistula [Unknown]
  - Cytokine release syndrome [Unknown]
  - Bacterial sepsis [Fatal]
  - Respiratory failure [Fatal]
  - Sinusitis [Unknown]
  - Sinusitis fungal [Fatal]
  - Candida sepsis [Unknown]
  - Cholecystitis [Unknown]
  - Infection [Fatal]
  - Lymphoproliferative disorder [Fatal]
  - Atrial fibrillation [Unknown]
  - Deep vein thrombosis [Unknown]
  - Fungal infection [Unknown]
  - Multiple organ dysfunction syndrome [Fatal]
  - Meningitis candida [Unknown]
  - Myelodysplastic syndrome [Unknown]
  - Myeloid leukaemia [Unknown]
  - Neutropenia [Unknown]
  - Graft versus host disease [Fatal]
